FAERS Safety Report 8388610-0 (Version None)
Quarter: 2012Q2

REPORT INFORMATION
  Report Type: 
  Country: None (occurrence: None)
  Receive Date: 20120525
  Receipt Date: 20120517
  Transmission Date: 20120825
  Serious: Yes (Hospitalization, Disabling, Other)
  Sender: FDA-Public Use
  Company Number: US-MERCK-1109USA03245

PATIENT
  Age: 69 Year
  Sex: Female
  Weight: 89 kg

DRUGS (6)
  1. FOSAMAX [Suspect]
     Indication: OSTEOPENIA
     Route: 048
     Dates: start: 20000101, end: 20080901
  2. FOSAMAX [Suspect]
     Route: 048
     Dates: start: 19960101
  3. FOSAMAX [Suspect]
     Indication: PROPHYLAXIS
     Route: 048
     Dates: start: 20081028, end: 20090721
  4. FOSAMAX [Suspect]
     Indication: OSTEOPOROSIS
     Route: 048
     Dates: start: 20000101, end: 20080901
  5. FOSAMAX [Suspect]
     Route: 048
     Dates: start: 19960101
  6. FOSAMAX [Suspect]
     Route: 048
     Dates: start: 20081028, end: 20090721

REACTIONS (40)
  - LUNG NEOPLASM [None]
  - ARTHRITIS [None]
  - BLOOD CALCIUM DECREASED [None]
  - SYSTEMIC INFLAMMATORY RESPONSE SYNDROME [None]
  - RENAL FAILURE ACUTE [None]
  - NAUSEA [None]
  - DRUG INEFFECTIVE [None]
  - DENTAL CARIES [None]
  - DERMATITIS ALLERGIC [None]
  - FALL [None]
  - LACTIC ACIDOSIS [None]
  - GASTROOESOPHAGEAL REFLUX DISEASE [None]
  - PNEUMONIA [None]
  - LUNG INFILTRATION [None]
  - BACK PAIN [None]
  - HYPERLIPIDAEMIA [None]
  - ADVERSE EVENT [None]
  - NORMOCHROMIC NORMOCYTIC ANAEMIA [None]
  - CATARACT [None]
  - SPINAL OSTEOARTHRITIS [None]
  - NEOPLASM MALIGNANT [None]
  - HYPOTENSION [None]
  - HYPERTENSION [None]
  - FEMUR FRACTURE [None]
  - DECREASED APPETITE [None]
  - BONE DENSITY DECREASED [None]
  - OEDEMA PERIPHERAL [None]
  - HYPERCHOLESTEROLAEMIA [None]
  - ACCELERATED HYPERTENSION [None]
  - HIATUS HERNIA [None]
  - APPENDIX DISORDER [None]
  - SWELLING [None]
  - ABDOMINAL PAIN [None]
  - OESTROGEN DEFICIENCY [None]
  - CYST [None]
  - STRESS [None]
  - ADVERSE DRUG REACTION [None]
  - OSTEOARTHRITIS [None]
  - DRUG HYPERSENSITIVITY [None]
  - MOUTH CYST [None]
